FAERS Safety Report 11719566 (Version 4)
Quarter: 2016Q1

REPORT INFORMATION
  Report Type: Spontaneous
  Country: US (occurrence: US)
  Receive Date: 20151110
  Receipt Date: 20160127
  Transmission Date: 20160525
  Serious: Yes (Hospitalization, Other)
  Sender: FDA-Public Use
  Company Number: US-PFIZER INC-2015368755

PATIENT
  Age: 57 Year
  Sex: Female

DRUGS (50)
  1. PHISOHEX [Concomitant]
     Active Substance: HEXACHLOROPHENE
     Dosage: 3 %, UNK
     Dates: start: 20130125
  2. DICYCLOMINE HCL [Concomitant]
     Active Substance: DICYCLOMINE HYDROCHLORIDE
     Dosage: 20 MG, 2X/DAY (TAKE 1 TABLET BEFORE MEALS + BED TIME)
     Dates: start: 20150901
  3. DIVALPROEX SODIUM. [Concomitant]
     Active Substance: DIVALPROEX SODIUM
     Dosage: 125 MG, 2X/DAY (TAKE 1 TABLET TWICE DAILY, WITH MORNING AND EVENING MEAL)
     Route: 048
     Dates: start: 20151110
  4. SYNTHROID [Concomitant]
     Active Substance: LEVOTHYROXINE SODIUM
     Indication: HYPOTHYROIDISM
     Dosage: 50 MG DAILY EXCEPT ON MONDAY SHE TAKES 2 TABLETS
     Dates: start: 1996
  5. CRESTOR [Concomitant]
     Active Substance: ROSUVASTATIN CALCIUM
     Dosage: 10 MG, 2X/WEEK
     Route: 048
     Dates: start: 2015
  6. CRESTOR [Concomitant]
     Active Substance: ROSUVASTATIN CALCIUM
     Dosage: 10 MG, 1X/DAY AT BEDTIME
     Route: 048
  7. CRESTOR [Concomitant]
     Active Substance: ROSUVASTATIN CALCIUM
     Dosage: 5 MG, ALTERNATE DAY
     Route: 048
  8. ALPRAZOLAM. [Concomitant]
     Active Substance: ALPRAZOLAM
     Dosage: 0.25 MG, 2X/DAY
     Route: 048
  9. FIORICET [Concomitant]
     Active Substance: ACETAMINOPHEN\BUTALBITAL\CAFFEINE
     Indication: MIGRAINE
     Dosage: WHEN THEY OCCUR AT 3 TO 6 HOUR INTERVALS
  10. TORSEMIDE. [Concomitant]
     Active Substance: TORSEMIDE
     Indication: OEDEMA
     Dosage: 20 MG, AS NEEDED
     Route: 048
  11. DIPHENOXYLATE [Concomitant]
     Active Substance: DIPHENOXYLATE
     Dosage: UNK ( (1 TABLET Q.8))
  12. VITAMIN B2 [Concomitant]
     Active Substance: RIBOFLAVIN
     Dosage: UNK
  13. FIORICET [Concomitant]
     Active Substance: ACETAMINOPHEN\BUTALBITAL\CAFFEINE
     Indication: HEADACHE
  14. PHENTERMINE HCL [Concomitant]
     Active Substance: PHENTERMINE HYDROCHLORIDE
     Indication: MEDICAL DIET
     Dosage: 15 MG, 1X/DAY (EVERY MORNING BEFORE BREAKFAST)
     Route: 048
  15. PANTOPRAZOLE [Concomitant]
     Active Substance: PANTOPRAZOLE SODIUM
     Dosage: 40 MG, 2X/DAY
  16. POTASSIUM CHLORIDE. [Concomitant]
     Active Substance: POTASSIUM CHLORIDE
     Dosage: 20 MEQ, 2X/DAY
     Route: 048
     Dates: start: 20150717
  17. LYRICA [Suspect]
     Active Substance: PREGABALIN
     Indication: FIBROMYALGIA
     Dosage: 100 MG, 3X/DAY
  18. HYDROCHLOROTHIAZIDE. [Concomitant]
     Active Substance: HYDROCHLOROTHIAZIDE
     Dosage: 25 MG, DAILY
     Route: 048
  19. XANAX [Concomitant]
     Active Substance: ALPRAZOLAM
     Indication: MIGRAINE
     Dosage: UNK, AS NEEDED (1 TO 3 TIMES DAILY )
  20. VITAMIN B12 [Concomitant]
     Active Substance: CYANOCOBALAMIN
     Dosage: UNK, MONTHLY
  21. PREDNISONE. [Concomitant]
     Active Substance: PREDNISONE
     Dosage: 20 MG, 2X/DAY
  22. ONDANSETRON [Concomitant]
     Active Substance: ONDANSETRON
     Dosage: 4 MG, AS NEEDED (EVERY 4-6 HRS )
     Route: 048
  23. ECOTRIN [Concomitant]
     Active Substance: ASPIRIN
     Dosage: UNK
     Dates: start: 1996
  24. TRAMADOL. [Concomitant]
     Active Substance: TRAMADOL
     Indication: PAIN
     Dosage: 50 MG, 4X/DAY
     Route: 048
  25. PREDNISONE. [Concomitant]
     Active Substance: PREDNISONE
     Dosage: 10 MG, ALTERNATE DAY
  26. LYRICA [Suspect]
     Active Substance: PREGABALIN
     Indication: NEUROPATHY PERIPHERAL
  27. BOTOX [Concomitant]
     Active Substance: ONABOTULINUMTOXINA
     Dosage: (200 UNIT) 1X/DAY
     Dates: start: 20150128
  28. TOPAMAX [Concomitant]
     Active Substance: TOPIRAMATE
     Dosage: 25 MG IN A.M. AND 50 MG IN P.M
  29. CEPHALEXIN. [Concomitant]
     Active Substance: CEPHALEXIN
     Dosage: 500 MG, 4X/DAY
     Route: 048
     Dates: start: 20150616
  30. GABAPENTIN. [Concomitant]
     Active Substance: GABAPENTIN
     Dosage: 300 MG, 4X/DAY
     Route: 048
     Dates: start: 20150915
  31. HYDROCHLOROTHIAZIDE. [Concomitant]
     Active Substance: HYDROCHLOROTHIAZIDE
     Dosage: 50 MG, DAILY
  32. ALPRAZOLAM. [Concomitant]
     Active Substance: ALPRAZOLAM
     Indication: BLADDER SPASM
     Dosage: 0.25 MG, 3X/DAY (AS NEEDED)
     Route: 048
  33. XANAX [Concomitant]
     Active Substance: ALPRAZOLAM
     Indication: HEADACHE
  34. TRAMADOL. [Concomitant]
     Active Substance: TRAMADOL
     Dosage: 100 MG, 3X/DAY
     Route: 048
     Dates: start: 20140314
  35. BENTYL [Concomitant]
     Active Substance: DICYCLOMINE HYDROCHLORIDE
     Dosage: 20 MG, UNK
  36. LEVOTHYROXINE SODIUM. [Concomitant]
     Active Substance: LEVOTHYROXINE SODIUM
     Dosage: 2 TABLETS ON MONDAY. TAKE 1 TABLET DAILY FOR REST OF THE WEEK
     Route: 048
     Dates: start: 20111114
  37. TRAMADOL HCL [Concomitant]
     Active Substance: TRAMADOL HYDROCHLORIDE
     Dosage: 100 MG, 3X/DAY (TAKE TWO TABLETS EVERY AM, 2 MID DAY AND 2 EVENING)
     Route: 048
     Dates: start: 20140314
  38. COUMADINE [Concomitant]
     Active Substance: WARFARIN SODIUM
     Dosage: (7.5 MG, DAILY (TAKE 1 AND 1/2 TABLETS BY MOUTH DAILY)
     Route: 048
     Dates: start: 20111004
  39. ALPRAZOLAM. [Concomitant]
     Active Substance: ALPRAZOLAM
     Dosage: 0.25 MG, AS NEEDED (TAKE 1 TABLET BY MOUTH EVERY 4 TO 6 HOURS)
     Route: 048
  40. TORSEMIDE. [Concomitant]
     Active Substance: TORSEMIDE
     Dosage: 20 MG, 2X/DAY
     Route: 048
     Dates: start: 20150424
  41. ULTRAM [Concomitant]
     Active Substance: TRAMADOL HYDROCHLORIDE
     Dosage: 50 MG, 3X/DAY
     Route: 048
     Dates: start: 20110426
  42. LYRICA [Suspect]
     Active Substance: PREGABALIN
     Indication: PAIN
     Dosage: 200 MG, 3 PER DAY
     Route: 048
     Dates: start: 20150501, end: 20150717
  43. LYRICA [Suspect]
     Active Substance: PREGABALIN
     Indication: NEURALGIA
  44. LYRICA [Suspect]
     Active Substance: PREGABALIN
     Indication: GENERALISED ANXIETY DISORDER
  45. ASPIRIN (E.C.) [Concomitant]
     Active Substance: ASPIRIN
     Dosage: 325 MG, DAILY
     Route: 048
  46. DIPHENOXYLATE [Concomitant]
     Active Substance: DIPHENOXYLATE
     Dosage: 1 DF, 3X/DAY
  47. BUTALBITAL, ACETAMINOPHEN, AND CAFFEINE [Concomitant]
     Active Substance: ACETAMINOPHEN\BUTALBITAL\CAFFEINE
     Dosage: 1 TABLET BY MOUTH EVERY 3 TO 6 HOURS
     Route: 048
     Dates: start: 20120315
  48. CLOBETASOL PROPIONATE. [Concomitant]
     Active Substance: CLOBETASOL PROPIONATE
     Dosage: 0.05 %, 2X/DAY
     Route: 061
     Dates: start: 20130423
  49. CYANOCOBALAMIN. [Concomitant]
     Active Substance: CYANOCOBALAMIN
     Dosage: 1000 MCG/ML, MONTHLY
     Route: 030
     Dates: start: 20131029
  50. LEVOFLOXACIN. [Concomitant]
     Active Substance: LEVOFLOXACIN
     Dosage: 500 MG, DAILY
     Route: 048
     Dates: start: 20150716

REACTIONS (30)
  - Drug-induced liver injury [Not Recovered/Not Resolved]
  - Condition aggravated [Not Recovered/Not Resolved]
  - Abdominal pain [Recovered/Resolved]
  - Myocardial infarction [Unknown]
  - Chest pain [Not Recovered/Not Resolved]
  - Panic attack [Unknown]
  - Hypoaesthesia [Unknown]
  - Diarrhoea [Not Recovered/Not Resolved]
  - Anxiety [Unknown]
  - Memory impairment [Not Recovered/Not Resolved]
  - Vision blurred [Unknown]
  - Gastrooesophageal reflux disease [Unknown]
  - Crying [Unknown]
  - Therapeutic response unexpected [Not Recovered/Not Resolved]
  - Blood albumin decreased [Unknown]
  - Pyrexia [Unknown]
  - Fatigue [Unknown]
  - Muscle spasms [Unknown]
  - Lymphadenitis [Unknown]
  - Burning sensation [Recovering/Resolving]
  - Chills [Unknown]
  - Nausea [Unknown]
  - Drug withdrawal syndrome [Not Recovered/Not Resolved]
  - Blood potassium decreased [Unknown]
  - Joint swelling [Unknown]
  - Pre-existing condition improved [Not Recovered/Not Resolved]
  - Emotional disorder [Unknown]
  - Migraine [Not Recovered/Not Resolved]
  - Confusional state [Unknown]
  - Vertigo positional [Unknown]

NARRATIVE: CASE EVENT DATE: 20150501
